FAERS Safety Report 7303249-3 (Version None)
Quarter: 2011Q1

REPORT INFORMATION
  Report Type: 
  Country: None (occurrence: None)
  Receive Date: 20110221
  Receipt Date: 20110210
  Transmission Date: 20110831
  Serious: Yes (Other)
  Sender: FDA-Public Use
  Company Number: NL-AMGEN-NLDSP2011002773

PATIENT
  Age: 46 Year
  Sex: Female

DRUGS (3)
  1. PARACETAMOL [Concomitant]
     Dosage: UNK
  2. IBUPROFEN [Concomitant]
     Dosage: UNK
  3. ENBREL [Suspect]
     Indication: ANKYLOSING SPONDYLITIS
     Dosage: 50 MG, WEEKLY
     Dates: start: 20101111

REACTIONS (2)
  - INSOMNIA [None]
  - ABSCESS JAW [None]
